FAERS Safety Report 21624585 (Version 4)
Quarter: 2024Q1

REPORT INFORMATION
  Report Type: Spontaneous
  Country: RO (occurrence: RO)
  Receive Date: 20221121
  Receipt Date: 20240306
  Transmission Date: 20240410
  Serious: Yes (Death, Life-Threatening, Hospitalization, Other)
  Sender: FDA-Public Use
  Company Number: RO-CELLTRION INC.-2022RO019335

PATIENT

DRUGS (6)
  1. RITUXIMAB [Suspect]
     Active Substance: RITUXIMAB
     Indication: Waldenstrom^s macroglobulinaemia
     Dosage: THE PATIENT RECEIVED CYTOTOXIC TREATMENT WITH CYBORD (CYCLOPHOSPHAMIDE 300 MG/M2, BORTEZOMIB 1,3 MG/
     Route: 065
  2. RITUXIMAB [Suspect]
     Active Substance: RITUXIMAB
     Dosage: ADDED TO INITIAL THERAPY AFTER FOUR MONTHS.
  3. CYCLOPHOSPHAMIDE [Suspect]
     Active Substance: CYCLOPHOSPHAMIDE
     Indication: Waldenstrom^s macroglobulinaemia
     Dosage: 300 MG/M2 / THE PATIENT RECEIVED CYTOTOXIC TREATMENT WITH CYBORD (CYCLOPHOSPHAMIDE 300 MG/M2, BORTEZ
     Route: 065
  4. BORTEZOMIB [Suspect]
     Active Substance: BORTEZOMIB
     Indication: Waldenstrom^s macroglobulinaemia
     Dosage: 1.3 MG/M2 / THE PATIENT RECEIVED CYTOTOXIC TREATMENT WITH CYBORD (CYCLOPHOSPHAMIDE 300 MG/M2, BORTEZ
     Route: 065
  5. DEXAMETHASONE SODIUM PHOSPHATE [Suspect]
     Active Substance: DEXAMETHASONE PHOSPHATE\DEXAMETHASONE SODIUM PHOSPHATE
     Indication: Waldenstrom^s macroglobulinaemia
     Dosage: 40 MG
     Route: 065
  6. DEXAMETHASONE [Suspect]
     Active Substance: DEXAMETHASONE
     Indication: Waldenstrom^s macroglobulinaemia
     Dosage: 40 MILLIGRAM / THE PATIENT RECEIVED CYTOTOXIC TREATMENT WITH CYBORD (CYCLOPHOSPHAMIDE 300 MG/M2, BOR
     Route: 065

REACTIONS (6)
  - Cardiotoxicity [Fatal]
  - Pulmonary hypertension [Fatal]
  - Right ventricular failure [Fatal]
  - Hyperviscosity syndrome [Unknown]
  - Drug ineffective [Unknown]
  - Intentional product use issue [Unknown]
